FAERS Safety Report 4889565-3 (Version None)
Quarter: 2006Q1

REPORT INFORMATION
  Report Type: 
  Country: None (occurrence: None)
  Receive Date: 20060120
  Receipt Date: 20060106
  Transmission Date: 20060701
  Serious: Yes (Other)
  Sender: FDA-Public Use
  Company Number: 2006S1000193

PATIENT
  Sex: Male

DRUGS (8)
  1. EXTENDED PHENYTOIN SODIUM [Suspect]
     Indication: EPILEPSY
     Dosage: 300 MG;HS;ORAL
     Route: 048
     Dates: start: 20050101
  2. ATORVASTATIN CALCIUM [Concomitant]
  3. LISINOPRIL [Concomitant]
  4. CALCIUM GLUCONATE [Concomitant]
  5. GLUCOSAMINE [Concomitant]
  6. HYDROCHLORIDE/CHONDROITIN SULFATE [Concomitant]
  7. ERGOCALCIFEROL/ASCORBIC ACID/FOLIC ACID/THIAMINE [Concomitant]
  8. HYDROCHLORIDE/RETINOL/RIBOFLAVIN/NICOTINAMIDE [Concomitant]

REACTIONS (5)
  - ANTICONVULSANT DRUG LEVEL BELOW THERAPEUTIC [None]
  - GRAND MAL CONVULSION [None]
  - MUSCLE RIGIDITY [None]
  - MUSCULOSKELETAL STIFFNESS [None]
  - SCREAMING [None]
